FAERS Safety Report 25930184 (Version 1)
Quarter: 2025Q4

REPORT INFORMATION
  Report Type: Spontaneous
  Country: US (occurrence: US)
  Receive Date: 20251016
  Receipt Date: 20251016
  Transmission Date: 20260118
  Serious: No
  Sender: BAYER HEALTHCARE LLC
  Company Number: US-BAYER-2025A136085

PATIENT
  Sex: Male
  Weight: 109 kg

DRUGS (2)
  1. ALEVE [Suspect]
     Active Substance: NAPROXEN SODIUM
     Dosage: UNK
  2. DUPIXENT [Suspect]
     Active Substance: DUPILUMAB
     Indication: Urticaria
     Dosage: 300 MG, Q2WK, STRENGTH 300MG/2ML
     Route: 058

REACTIONS (4)
  - Lip swelling [Unknown]
  - Swelling face [Unknown]
  - Urticaria [Unknown]
  - Rash [Unknown]
